FAERS Safety Report 6790556-6 (Version None)
Quarter: 2010Q2

REPORT INFORMATION
  Report Type: 
  Country: None (occurrence: None)
  Receive Date: 20100520
  Receipt Date: 20090618
  Transmission Date: 20101027
  Serious: Yes (Other)
  Sender: FDA-Public Use
  Company Number: 2009229104

PATIENT
  Age: 64 Year
  Sex: Female
  Weight: 82 kg

DRUGS (12)
  1. PROVERA [Suspect]
     Indication: HORMONE REPLACEMENT THERAPY
     Dosage: 10 MG, ORAL
     Route: 048
     Dates: start: 19830824
  2. MEDROXYPROGESTERONE ACETATE [Suspect]
     Indication: HORMONE REPLACEMENT THERAPY
     Dosage: 2.5 MG, ORAL
     Route: 048
     Dates: start: 19930721, end: 20051001
  3. MEDROXYPROGESTERONE [Suspect]
     Indication: HORMONE REPLACEMENT THERAPY
     Dosage: 2.5 MG
     Dates: start: 19930721, end: 20051001
  4. ESTRACE [Suspect]
     Indication: HORMONE REPLACEMENT THERAPY
     Dosage: 1 MG
     Dates: start: 19930721, end: 19950101
  5. ESTRADIOL CIPIONATE (ESTRADIOL CIPIONATE) [Suspect]
     Indication: HORMONE REPLACEMENT THERAPY
     Dosage: 0.5 MG
     Dates: start: 19950101, end: 20051001
  6. COMBIPATCH [Suspect]
     Indication: HORMONE REPLACEMENT THERAPY
     Dosage: 0.5 MG, TRANSDERMAL
     Route: 062
     Dates: start: 20021001, end: 20030101
  7. ASPIRIN [Concomitant]
  8. LOVASTATIN [Concomitant]
  9. HYDROCHLOROTHIAZIDE [Concomitant]
  10. AMITRIPTYLINE HYDROCHLORIDE [Concomitant]
  11. NAPROXEN [Concomitant]
  12. CEPHALEXIN [Concomitant]

REACTIONS (1)
  - BREAST CANCER FEMALE [None]
